FAERS Safety Report 15036074 (Version 2)
Quarter: 2018Q2

REPORT INFORMATION
  Report Type: Report from Study
  Country: US (occurrence: US)
  Receive Date: 20180620
  Receipt Date: 20180621
  Transmission Date: 20180711
  Serious: No
  Sender: FDA-Public Use
  Company Number: US-SA-2018SA155768

PATIENT
  Age: 75 Year
  Sex: Female

DRUGS (1)
  1. ALIROCUMAB [Suspect]
     Active Substance: ALIROCUMAB
     Indication: BLOOD CHOLESTEROL INCREASED
     Dosage: 75 MG, QOW
     Route: 058
     Dates: start: 20180503

REACTIONS (5)
  - Spinal osteoarthritis [Unknown]
  - Injection site discomfort [Unknown]
  - Headache [Recovered/Resolved]
  - Osteoarthritis [Unknown]
  - Pain [Not Recovered/Not Resolved]
